FAERS Safety Report 19659406 (Version 1)
Quarter: 2021Q3

REPORT INFORMATION
  Report Type: Report from Study
  Country: CO (occurrence: CO)
  Receive Date: 20210804
  Receipt Date: 20210804
  Transmission Date: 20211014
  Serious: Yes (Other)
  Sender: FDA-Public Use
  Company Number: NVSC2021CO168324

PATIENT
  Sex: Male
  Weight: 80 kg

DRUGS (2)
  1. ACETYLSALICYLIC ACID [Concomitant]
     Active Substance: ASPIRIN
     Indication: PRODUCT USED FOR UNKNOWN INDICATION
     Dosage: UNK, QD (STARTED 10 YEARS AGO)
     Route: 048
  2. METOPROLOL. [Suspect]
     Active Substance: METOPROLOL
     Indication: HYPERTENSION
     Dosage: 50 MG, QD (STARTED 12 YEARS AGO)
     Route: 048

REACTIONS (7)
  - Off label use [Unknown]
  - Psoriatic arthropathy [Unknown]
  - Gun shot wound [Unknown]
  - Anxiety [Unknown]
  - Umbilical hernia [Unknown]
  - Sleep disorder [Unknown]
  - Persecutory delusion [Unknown]

NARRATIVE: CASE EVENT DATE: 2011
